FAERS Safety Report 23236308 (Version 1)
Quarter: 2023Q4

REPORT INFORMATION
  Report Type: Report from Study
  Country: US (occurrence: US)
  Receive Date: 20231128
  Receipt Date: 20231128
  Transmission Date: 20240110
  Serious: Yes (Other)
  Sender: FDA-Public Use
  Company Number: US-SUN PHARMACEUTICAL INDUSTRIES LTD-2023R1-420909

PATIENT
  Age: 54 Year
  Sex: Male

DRUGS (2)
  1. TEMOZOLOMIDE [Suspect]
     Active Substance: TEMOZOLOMIDE
     Indication: Oligodendroglioma
     Dosage: 75 MILLIGRAM/SQ. METER, QD
     Route: 065
  2. OLAPARIB [Suspect]
     Active Substance: OLAPARIB
     Indication: Oligodendroglioma
     Dosage: 150 MILLIGRAM/3X/WK
     Route: 065

REACTIONS (4)
  - Disease progression [Unknown]
  - Constipation [Unknown]
  - Fatigue [Unknown]
  - Nausea [Unknown]
